FAERS Safety Report 10057621 (Version 1)
Quarter: 2014Q2

REPORT INFORMATION
  Report Type: Spontaneous
  Country: CA (occurrence: CA)
  Receive Date: 20140404
  Receipt Date: 20140404
  Transmission Date: 20141212
  Serious: Yes (Other)
  Sender: FDA-Public Use
  Company Number: CA-ROCHE-1374378

PATIENT
  Age: 57 Year
  Sex: Male

DRUGS (9)
  1. ZITHROMAX [Concomitant]
  2. SYMBICORT [Concomitant]
  3. SINGULAIR [Concomitant]
  4. PREDNISONE [Concomitant]
  5. NASONEX [Concomitant]
  6. ALVESCO [Concomitant]
  7. LIPITOR [Concomitant]
  8. VENTOLIN [Concomitant]
  9. XOLAIR [Suspect]
     Indication: ASTHMA
     Route: 058
     Dates: start: 20090504

REACTIONS (9)
  - Parkinson^s disease [Unknown]
  - Productive cough [Unknown]
  - Asthenia [Not Recovered/Not Resolved]
  - Dysphonia [Unknown]
  - Osteoarthritis [Unknown]
  - Asthma [Unknown]
  - Arthritis [Unknown]
  - Paraesthesia [Unknown]
  - Dizziness [Unknown]
